FAERS Safety Report 7699968-X (Version None)
Quarter: 2011Q3

REPORT INFORMATION
  Report Type: 
  Country: None (occurrence: None)
  Receive Date: 20110815
  Receipt Date: 20110728
  Transmission Date: 20111222
  Serious: Yes (Hospitalization)
  Sender: FDA-Public Use
  Company Number: 2011AER0001

PATIENT
  Age: 77 Year
  Sex: Male

DRUGS (1)
  1. ALLOPURINOL [Suspect]
     Dosage: 300MG, DAILY, PO
     Route: 048
     Dates: start: 20110429, end: 20110523

REACTIONS (1)
  - RASH [None]
